FAERS Safety Report 7719250-1 (Version None)
Quarter: 2011Q3

REPORT INFORMATION
  Report Type: 
  Country: None (occurrence: None)
  Receive Date: 20110830
  Receipt Date: 20110824
  Transmission Date: 20111222
  Serious: Yes (Other)
  Sender: FDA-Public Use
  Company Number: US-BAYER-2011-001150

PATIENT
  Age: 18 Year
  Sex: Female
  Weight: 100 kg

DRUGS (13)
  1. YAZ [Suspect]
     Indication: CONTRACEPTION
     Dosage: 1 DF, QD
     Route: 048
     Dates: start: 20080801, end: 20091001
  2. NAPROXEN [Concomitant]
  3. FIORICET [Concomitant]
     Dosage: 1 TEASPOON 3 TIMES DAILY AS NEEDED
     Route: 048
  4. NUBAIN [Concomitant]
     Dosage: 10 MG, UNK
     Route: 030
     Dates: start: 20091007, end: 20091007
  5. VICODIN [Concomitant]
     Dosage: UNK
     Route: 048
     Dates: start: 20090921
  6. FLAGYL [Concomitant]
     Dosage: 500 MG, BID
     Route: 048
  7. LEXAPRO [Concomitant]
     Dosage: 10 MG, QD
     Route: 048
  8. IBUPROFEN [Concomitant]
  9. PHENERGAN HCL [Concomitant]
     Dosage: 20 MG, EVERY 6 HOURS AS NEEDED
     Route: 048
  10. DOXYCYCLINE [Concomitant]
     Indication: MIGRAINE
     Dosage: 100 MG, BID
     Route: 048
  11. DOXYCYCLINE [Concomitant]
     Indication: ACUTE SINUSITIS
  12. AMOXICILLIN [Concomitant]
     Indication: ANTIBIOTIC THERAPY
     Dosage: 500 MG, BID
     Route: 048
  13. BACTRIM DS [Concomitant]
     Dosage: UNK
     Route: 048
     Dates: start: 20090921

REACTIONS (3)
  - PAIN [None]
  - GALLBLADDER DISORDER [None]
  - CHOLECYSTITIS CHRONIC [None]
